FAERS Safety Report 6026621-0 (Version None)
Quarter: 2008Q4

REPORT INFORMATION
  Report Type: 
  Country: None (occurrence: None)
  Receive Date: 20081231
  Receipt Date: 20081222
  Transmission Date: 20090506
  Serious: Yes (Hospitalization, Other)
  Sender: FDA-Public Use
  Company Number: 2008AP003523

PATIENT
  Age: 9 Year
  Sex: Male
  Weight: 31.2 kg

DRUGS (1)
  1. SERTRALINE HCL [Suspect]
     Dosage: 50 MG; 1X;

REACTIONS (12)
  - ABDOMINAL PAIN UPPER [None]
  - AGGRESSION [None]
  - BLOOD CREATINE PHOSPHOKINASE INCREASED [None]
  - CLONUS [None]
  - DELIRIUM [None]
  - DIARRHOEA [None]
  - HYPERTONIA [None]
  - MUSCLE SPASTICITY [None]
  - MYDRIASIS [None]
  - PUPILLARY REFLEX IMPAIRED [None]
  - SEROTONIN SYNDROME [None]
  - WHITE BLOOD CELL COUNT INCREASED [None]
